FAERS Safety Report 10026962 (Version 1)
Quarter: 2014Q1

REPORT INFORMATION
  Report Type: Spontaneous
  Country: SE (occurrence: None)
  Receive Date: 20140318
  Receipt Date: 20140318
  Transmission Date: 20141002
  Serious: Yes (Other)
  Sender: FDA-Public Use
  Company Number: 2014GB0134

PATIENT
  Age: 22 Year
  Sex: Male

DRUGS (1)
  1. ANAKINRA [Suspect]
     Indication: CRANIOCEREBRAL INJURY
     Route: 058

REACTIONS (2)
  - Pneumothorax [None]
  - Atelectasis [None]
